FAERS Safety Report 21609694 (Version 2)
Quarter: 2023Q2

REPORT INFORMATION
  Report Type: Spontaneous
  Country: CA (occurrence: CA)
  Receive Date: 20221117
  Receipt Date: 20230517
  Transmission Date: 20230722
  Serious: Yes (Death, Other)
  Sender: FDA-Public Use
  Company Number: CA-ELI_LILLY_AND_COMPANY-CA202211008479

PATIENT
  Age: 48 Year
  Sex: Female
  Weight: 45 kg

DRUGS (4)
  1. ABEMACICLIB [Suspect]
     Active Substance: ABEMACICLIB
     Indication: Breast cancer
     Dosage: UNK UNK, UNKNOWN
     Route: 065
  2. ALPELISIB [Suspect]
     Active Substance: ALPELISIB
     Indication: Breast cancer
     Dosage: 150 MG, DAILY
     Route: 048
     Dates: end: 2021
  3. ALPELISIB [Suspect]
     Active Substance: ALPELISIB
     Dosage: UNK UNK, OTHER (EVERY OTHER DAY)
     Route: 048
     Dates: start: 2021
  4. ALPELISIB [Suspect]
     Active Substance: ALPELISIB
     Dosage: 300 MG, DAILY
     Route: 048
     Dates: start: 2021, end: 2022

REACTIONS (3)
  - Diabetes mellitus [Not Recovered/Not Resolved]
  - Rash [Recovered/Resolved]
  - Malignant neoplasm progression [Fatal]

NARRATIVE: CASE EVENT DATE: 20210101
